FAERS Safety Report 8046552-4 (Version None)
Quarter: 2012Q1

REPORT INFORMATION
  Report Type: 
  Country: None (occurrence: None)
  Receive Date: 20120113
  Receipt Date: 20120104
  Transmission Date: 20120608
  Serious: Yes (Hospitalization)
  Sender: FDA-Public Use
  Company Number: US-MERCK-1111USA03452

PATIENT
  Age: 86 Year
  Sex: Female
  Weight: 59 kg

DRUGS (4)
  1. NORVASC [Suspect]
     Indication: HYPERTENSION
     Route: 065
     Dates: start: 20111001
  2. LASIX [Suspect]
     Indication: HYPERTENSION
     Route: 048
     Dates: start: 20111001
  3. CLONIDINE [Suspect]
     Indication: HYPERTENSION
     Route: 065
     Dates: start: 20111001
  4. PRINIVIL [Suspect]
     Indication: HYPERTENSION
     Route: 048
     Dates: start: 20111001

REACTIONS (2)
  - DRUG INEFFECTIVE [None]
  - BLOOD PRESSURE INCREASED [None]
